FAERS Safety Report 7523680-0 (Version None)
Quarter: 2011Q2

REPORT INFORMATION
  Report Type: 
  Country: None (occurrence: None)
  Receive Date: 20110603
  Receipt Date: 20110520
  Transmission Date: 20111010
  Serious: No
  Sender: FDA-Public Use
  Company Number: US-B.I. PHARMACEUTICALS,INC./RIDGEFIELD-2011-BP-13666BP

PATIENT
  Sex: Female

DRUGS (2)
  1. PRADAXA [Suspect]
     Indication: ATRIAL FIBRILLATION
     Dosage: 150 MG
     Route: 048
     Dates: start: 20110503, end: 20110508
  2. CYTOTEC [Concomitant]
     Indication: GASTRIC PH DECREASED
     Route: 048

REACTIONS (2)
  - DYSPEPSIA [None]
  - OESOPHAGITIS [None]
